FAERS Safety Report 17174538 (Version 1)
Quarter: 2019Q4

REPORT INFORMATION
  Report Type: Report from Study
  Country: JP (occurrence: JP)
  Receive Date: 20191219
  Receipt Date: 20191219
  Transmission Date: 20200122
  Serious: Yes (Hospitalization)
  Sender: FDA-Public Use
  Company Number: JP-EISAI MEDICAL RESEARCH-EC-2019-050357

PATIENT
  Age: 76 Year
  Sex: Female
  Weight: 44 kg

DRUGS (32)
  1. LEXOTAN [Concomitant]
     Active Substance: BROMAZEPAM
  2. DENOTAS [Concomitant]
     Active Substance: CALCIUM CARBONATE\CHOLECALCIFEROL\MAGNESIUM CARBONATE
  3. TARIVID [Concomitant]
     Active Substance: OFLOXACIN
  4. LENVIMA [Suspect]
     Active Substance: LENVATINIB
     Route: 048
     Dates: start: 20181231, end: 20190421
  5. ZEFIX [Concomitant]
     Active Substance: LAMIVUDINE
  6. FERROUS CITRATE NA [Concomitant]
     Active Substance: SODIUM FERROUS CITRATE
  7. WYSTAL [Concomitant]
     Active Substance: CEFOPERAZONE SODIUM\SULBACTAM SODIUM
  8. MEROPENEM. [Concomitant]
     Active Substance: MEROPENEM
  9. NEGMIN [Concomitant]
  10. LENVIMA [Suspect]
     Active Substance: LENVATINIB
     Indication: HEPATOCELLULAR CARCINOMA
     Route: 048
     Dates: start: 20180830, end: 20180910
  11. LENVIMA [Suspect]
     Active Substance: LENVATINIB
     Route: 048
     Dates: start: 20181015, end: 20181226
  12. LYRICA [Concomitant]
     Active Substance: PREGABALIN
  13. BISOLVON [Concomitant]
     Active Substance: BROMHEXINE HYDROCHLORIDE
  14. FUCIDIN LEO [Concomitant]
     Active Substance: FUSIDATE SODIUM
  15. BRONUCK [Concomitant]
     Active Substance: BROMFENAC SODIUM
  16. CEFZON [Concomitant]
     Active Substance: CEFDINIR
  17. CARBAZOCHROME SULFONATE NA [Concomitant]
  18. UNISIA [Concomitant]
     Active Substance: AMLODIPINE BESYLATE\CANDESARTAN CILEXETIL
  19. VEGAMOX [Concomitant]
     Active Substance: MOXIFLOXACIN HYDROCHLORIDE
  20. BROTIZOLAM [Concomitant]
     Active Substance: BROTIZOLAM
  21. LEVOFLOXACIN. [Concomitant]
     Active Substance: LEVOFLOXACIN
  22. HIRUDOID [Concomitant]
     Active Substance: GLYCOSAMINOGLYCANS
  23. LENVIMA [Suspect]
     Active Substance: LENVATINIB
     Dosage: 5 DAYS ON/2 DAYS OFF SCHEDULE
     Route: 048
     Dates: start: 20190422, end: 20190730
  24. LANSOPRAZOLE. [Concomitant]
     Active Substance: LANSOPRAZOLE
  25. TRANSAMIN [Concomitant]
     Active Substance: TRANEXAMIC ACID
  26. MIYA [Concomitant]
  27. TENOZET [Concomitant]
     Active Substance: TENOFOVIR DISOPROXIL FUMARATE
  28. TRAMAL [Concomitant]
     Active Substance: TRAMADOL
  29. AMLODIPINE [Concomitant]
     Active Substance: AMLODIPINE BESYLATE
  30. MEDICON [Concomitant]
     Active Substance: DEXTROMETHORPHAN HYDROBROMIDE
  31. GATIFLO [Concomitant]
     Active Substance: GATIFLOXACIN
  32. LACTEC-D [Concomitant]

REACTIONS (4)
  - Decreased appetite [Recovering/Resolving]
  - Urinary tract infection [Recovering/Resolving]
  - Lower gastrointestinal haemorrhage [Recovering/Resolving]
  - Bacterial sepsis [Recovered/Resolved]

NARRATIVE: CASE EVENT DATE: 20180913
